FAERS Safety Report 7132049-2 (Version None)
Quarter: 2010Q4

REPORT INFORMATION
  Report Type: 
  Country: None (occurrence: None)
  Receive Date: 20101202
  Receipt Date: 20101118
  Transmission Date: 20110411
  Serious: Yes (Other)
  Sender: FDA-Public Use
  Company Number: PHHY2010FR81450

PATIENT
  Age: 31 Year
  Sex: Female

DRUGS (4)
  1. LEPONEX [Suspect]
     Indication: SCHIZOPHRENIA
     Dosage: 600 MG, QD
  2. DEPAKENE [Concomitant]
  3. RIVOTRIL [Concomitant]
  4. LEUPROLIDE ACETATE [Concomitant]

REACTIONS (1)
  - ANTIPSYCHOTIC DRUG LEVEL BELOW THERAPEUTIC [None]
